FAERS Safety Report 18959495 (Version 2)
Quarter: 2021Q1

REPORT INFORMATION
  Report Type: Report from Study
  Country: FR (occurrence: FR)
  Receive Date: 20210302
  Receipt Date: 20210328
  Transmission Date: 20210420
  Serious: Yes (Death, Hospitalization)
  Sender: FDA-Public Use
  Company Number: FR-BRISTOL-MYERS SQUIBB COMPANY-BMS-2021-017462

PATIENT
  Age: 82 Year
  Sex: Male

DRUGS (1)
  1. NIVOLUMAB [Suspect]
     Active Substance: NIVOLUMAB
     Indication: LUNG NEOPLASM MALIGNANT
     Dosage: 180 MILLIGRAM EVERY 15 DAYS
     Route: 042
     Dates: start: 20170915, end: 20171013

REACTIONS (3)
  - General physical health deterioration [Recovered/Resolved]
  - Tumour associated fever [Recovered/Resolved]
  - Intentional product use issue [Unknown]

NARRATIVE: CASE EVENT DATE: 20171002
